FAERS Safety Report 18652023 (Version 1)
Quarter: 2020Q4

REPORT INFORMATION
  Report Type: Spontaneous
  Country: US (occurrence: US)
  Receive Date: 20201223
  Receipt Date: 20201223
  Transmission Date: 20210114
  Serious: No
  Sender: FDA-Public Use
  Company Number: US-ASTRAZENECA-2020SF59798

PATIENT
  Age: 21237 Day
  Sex: Male

DRUGS (1)
  1. SYMBICORT [Suspect]
     Active Substance: BUDESONIDE\FORMOTEROL FUMARATE DIHYDRATE
     Indication: CHRONIC OBSTRUCTIVE PULMONARY DISEASE
     Dosage: UNKNOWN, DAILY
     Route: 055
     Dates: start: 20191127, end: 20201001

REACTIONS (4)
  - Insurance issue [Not Recovered/Not Resolved]
  - Dyspnoea [Unknown]
  - Product dose omission issue [Not Recovered/Not Resolved]
  - Discomfort [Unknown]

NARRATIVE: CASE EVENT DATE: 20201001
